FAERS Safety Report 18331595 (Version 1)
Quarter: 2020Q3

REPORT INFORMATION
  Report Type: Spontaneous
  Country: US (occurrence: US)
  Receive Date: 20200930
  Receipt Date: 20200930
  Transmission Date: 20201103
  Serious: Yes (Other)
  Sender: FDA-Public Use
  Company Number: US-PURDUE-USA-2020-0168413

PATIENT
  Sex: Male

DRUGS (1)
  1. OXYCONTIN [Suspect]
     Active Substance: OXYCODONE HYDROCHLORIDE
     Indication: BACK PAIN
     Dosage: UNK
     Route: 048
     Dates: start: 199811

REACTIONS (7)
  - Disturbance in attention [Unknown]
  - Libido decreased [Unknown]
  - Social avoidant behaviour [Unknown]
  - Irritability [Unknown]
  - Drug dependence [Recovered/Resolved]
  - Self-injurious ideation [Unknown]
  - Depression [Unknown]
